FAERS Safety Report 17974028 (Version 1)
Quarter: 2020Q3

REPORT INFORMATION
  Report Type: Spontaneous
  Country: US (occurrence: US)
  Receive Date: 20200702
  Receipt Date: 20200702
  Transmission Date: 20201103
  Serious: Yes (Hospitalization)
  Sender: FDA-Public Use
  Company Number: None

PATIENT
  Age: 17 Year
  Sex: Female

DRUGS (11)
  1. OMEPRAZOLE. [Concomitant]
     Active Substance: OMEPRAZOLE
  2. ONDANSETRON [Concomitant]
     Active Substance: ONDANSETRON
  3. METRONIDAZOL [Concomitant]
     Active Substance: METRONIDAZOLE
  4. HUMIRA [Suspect]
     Active Substance: ADALIMUMAB
     Indication: CROHN^S DISEASE
     Dosage: ?          OTHER FREQUENCY:Q14D;?
     Route: 058
     Dates: start: 20200317
  5. AZITHROMYCIN ANHYDROUS. [Concomitant]
     Active Substance: AZITHROMYCIN ANHYDROUS
  6. BUDESONIDE. [Concomitant]
     Active Substance: BUDESONIDE
  7. METHOTREXATE. [Concomitant]
     Active Substance: METHOTREXATE
  8. FOLIC ACID, [Concomitant]
  9. PREDNISONE. [Concomitant]
     Active Substance: PREDNISONE
  10. ALBUTEROL AER [Concomitant]
  11. POLYETGLYC [Concomitant]

REACTIONS (3)
  - Crohn^s disease [None]
  - Infection [None]
  - Ascites [None]

NARRATIVE: CASE EVENT DATE: 202006
